FAERS Safety Report 4544752-9 (Version None)
Quarter: 2004Q4

REPORT INFORMATION
  Report Type: 
  Country: None (occurrence: None)
  Receive Date: 20041230
  Receipt Date: 20041217
  Transmission Date: 20050328
  Serious: Yes (Hospitalization)
  Sender: FDA-Public Use
  Company Number: 2004227356DE

PATIENT
  Age: 57 Year
  Sex: Female
  Weight: 107 kg

DRUGS (6)
  1. EPIRUBICIN HYDROCHLORIDE (EPIRUBICIN HYDROCHLORIDE ) [Suspect]
     Indication: BREAST CANCER
     Dosage: INTRAVENOUS
     Route: 042
     Dates: start: 20040302, end: 20040504
  2. CYCLOPHOSPHAMIDE [Suspect]
     Indication: BREAST CANCER
     Dates: start: 20040302, end: 20040504
  3. DOCETAXEL (DOCETAXEL) [Suspect]
     Indication: BREAST CANCER
     Dates: start: 20040526, end: 20040707
  4. HYZAAR [Concomitant]
  5. METFORMIN HCL [Concomitant]
  6. VERAPAMIL [Concomitant]

REACTIONS (1)
  - THROMBOSIS [None]
